FAERS Safety Report 16544227 (Version 1)
Quarter: 2019Q3

REPORT INFORMATION
  Report Type: Spontaneous
  Country: US (occurrence: US)
  Receive Date: 20190709
  Receipt Date: 20190709
  Transmission Date: 20191004
  Serious: No
  Sender: FDA-Public Use
  Company Number: US-PFIZER INC-2019290936

PATIENT
  Age: 36 Year
  Sex: Female

DRUGS (1)
  1. DICLOFENAC EPOLAMINE [Suspect]
     Active Substance: DICLOFENAC EPOLAMINE
     Dosage: UNK

REACTIONS (5)
  - Drug hypersensitivity [Unknown]
  - Paraesthesia [Unknown]
  - Hallucination [Unknown]
  - Paraesthesia oral [Unknown]
  - Swelling [Unknown]

NARRATIVE: CASE EVENT DATE: 20150826
